FAERS Safety Report 5237537-1 (Version None)
Quarter: 2007Q1

REPORT INFORMATION
  Report Type: 
  Country: None (occurrence: None)
  Receive Date: 20070213
  Receipt Date: 20070205
  Transmission Date: 20070707
  Serious: Yes (Other)
  Sender: FDA-Public Use
  Company Number: JP-PFIZER INC-2006152439

PATIENT
  Age: 67 Year
  Sex: Male

DRUGS (3)
  1. LIPITOR [Suspect]
     Indication: HYPERCHOLESTEROLAEMIA
     Dosage: DAILY DOSE:10MG
     Route: 048
     Dates: start: 20060711, end: 20061104
  2. BLOPRESS [Suspect]
     Indication: HYPERTENSION
     Dosage: DAILY DOSE:8MG
     Route: 048
  3. URALYT [Concomitant]
     Indication: CALCULUS URETERIC
     Route: 048

REACTIONS (2)
  - ECZEMA [None]
  - LIVER DISORDER [None]
